FAERS Safety Report 18410470 (Version 11)
Quarter: 2022Q1

REPORT INFORMATION
  Report Type: Report from Study
  Country: US (occurrence: US)
  Receive Date: 20201021
  Receipt Date: 20220310
  Transmission Date: 20220424
  Serious: No
  Sender: FDA-Public Use
  Company Number: NVSC2020US282621

PATIENT
  Age: 64 Year
  Sex: Male

DRUGS (1)
  1. COSENTYX [Suspect]
     Active Substance: SECUKINUMAB
     Indication: Ankylosing spondylitis
     Dosage: 150 MG, QW (EVERY WEEK X 5 WEEKS THEN EVERY 4)
     Route: 058
     Dates: start: 20201012

REACTIONS (10)
  - Muscle spasms [Unknown]
  - Oropharyngeal pain [Unknown]
  - Pain [Unknown]
  - Upper-airway cough syndrome [Unknown]
  - Nasopharyngitis [Unknown]
  - Drug ineffective [Unknown]
  - Nausea [Unknown]
  - Bone development abnormal [Unknown]
  - Ill-defined disorder [Unknown]
  - Bone disorder [Unknown]

NARRATIVE: CASE EVENT DATE: 20210118
